FAERS Safety Report 8992010 (Version 2)
Quarter: 2013Q1

REPORT INFORMATION
  Report Type: Spontaneous
  Country: US (occurrence: US)
  Receive Date: 20121231
  Receipt Date: 20130107
  Transmission Date: 20140127
  Serious: Yes (Other)
  Sender: FDA-Public Use
  Company Number: CHPA2012US025803

PATIENT
  Age: 47 Year
  Sex: Female

DRUGS (3)
  1. PREVACID 24HR 15MG [Suspect]
     Indication: GASTROOESOPHAGEAL REFLUX DISEASE
     Dosage: UNK, UNK
     Route: 048
  2. PREDNISONE [Concomitant]
     Indication: SWELLING
     Dosage: UNK, UNK
     Route: 048
  3. LEVOTHYROXIN [Concomitant]
     Indication: THYROID DISORDER
     Dosage: UNK, UNK
     Route: 048

REACTIONS (3)
  - Wheezing [Recovered/Resolved]
  - Off label use [Unknown]
  - Incorrect drug administration duration [Unknown]
